FAERS Safety Report 5228768-5 (Version None)
Quarter: 2007Q1

REPORT INFORMATION
  Report Type: 
  Country: None (occurrence: None)
  Receive Date: 20070131
  Receipt Date: 20070125
  Transmission Date: 20070707
  Serious: Yes (Death)
  Sender: FDA-Public Use
  Company Number: TPA2006A01268

PATIENT
  Age: 65 Year
  Sex: Male
  Weight: 94.8018 kg

DRUGS (17)
  1. ACTOS [Suspect]
     Indication: DIABETES MELLITUS
     Dosage: 45 MG, 1 IN 1 D, PER ORAL
     Route: 048
     Dates: start: 20030701, end: 20060611
  2. NIASPAN [Suspect]
     Indication: BLOOD CHOLESTEROL INCREASED
     Dosage: 1000 MG, 1 IN 1 D, PER ORAL
     Route: 048
     Dates: start: 20060611, end: 20060611
  3. NIASPAN [Suspect]
     Indication: HIGH DENSITY LIPOPROTEIN DECREASED
     Dosage: 1000 MG, 1 IN 1 D, PER ORAL
     Route: 048
     Dates: start: 20060611, end: 20060611
  4. WELLBUTRIN [Suspect]
     Indication: DEPRESSION
     Dosage: 300 MG, 1 IN 1 D, PER ORAL
     Route: 048
     Dates: end: 20060611
  5. EFFEXOR [Suspect]
     Indication: DEPRESSION
     Dosage: 150 MG, 1 IN 1 D, PER ORAL
     Route: 048
     Dates: end: 20060611
  6. LORAZEPAM [Suspect]
     Indication: DEPRESSION
     Dosage: 2 MG, 1 IN 1 D, PER ORAL
     Route: 048
     Dates: end: 20060611
  7. TRAZODONE HCL [Suspect]
     Indication: DEPRESSION
     Dosage: 200 MG, 1 IN 1 D, PER ORAL
     Route: 048
     Dates: end: 20060611
  8. TENORMIN [Suspect]
     Indication: TACHYARRHYTHMIA
     Dosage: 100 MG, 1 IN 1 D, PER ORAL
     Route: 048
     Dates: end: 20060611
  9. LANOXIN [Suspect]
     Indication: TACHYARRHYTHMIA
     Dosage: 0.375 MG, 1 IN 1 D, PER ORAL
     Route: 048
     Dates: end: 20060611
  10. GLUCOPHAGE [Suspect]
     Indication: DIABETES MELLITUS
     Dosage: 1000 MG, 2 IN 1 D, PER ORAL
     Route: 048
     Dates: end: 20060611
  11. GLUCOTROL XL [Suspect]
     Indication: DIABETES MELLITUS
     Dosage: 10 MG, 1 IN 1 D, PER ORAL
     Route: 048
     Dates: end: 20060611
  12. TRICOR [Suspect]
     Indication: DYSLIPIDAEMIA
     Dosage: 160 MG, 1 IN 1 D, PER ORAL
     Route: 048
     Dates: end: 20060611
  13. LANTUS [Suspect]
     Indication: DIABETES MELLITUS
     Dosage: SEE IMAGE
     Route: 058
     Dates: end: 20060609
  14. LANTUS [Suspect]
     Indication: DIABETES MELLITUS
     Dosage: SEE IMAGE
     Route: 058
     Dates: start: 20060609, end: 20060611
  15. LIPITOR [Suspect]
     Dates: end: 20060611
  16. MULTIVITAMIN [Suspect]
     Dates: end: 20060611
  17. RISPERDAL [Suspect]
     Dosage: 3 MG, PER ORAL
     Route: 048
     Dates: end: 20060611

REACTIONS (2)
  - CARDIO-RESPIRATORY ARREST [None]
  - MYOCARDIAL INFARCTION [None]
